FAERS Safety Report 9166376 (Version 1)
Quarter: 2013Q1

REPORT INFORMATION
  Report Type: Report from Study
  Country: US (occurrence: US)
  Receive Date: 20130315
  Receipt Date: 20130315
  Transmission Date: 20140127
  Serious: Yes (Hospitalization)
  Sender: FDA-Public Use
  Company Number: US-TEVA-392138USA

PATIENT
  Age: 52 Year
  Sex: Male
  Weight: 97.7 kg

DRUGS (3)
  1. TREANDA [Suspect]
     Indication: PLASMA CELL MYELOMA
     Route: 042
     Dates: start: 20121127, end: 20130301
  2. VELCADE [Suspect]
     Indication: PLASMA CELL MYELOMA
     Route: 042
     Dates: start: 20121127, end: 20130305
  3. DOXIL [Suspect]
     Indication: PLASMA CELL MYELOMA
     Route: 042
     Dates: start: 20121130

REACTIONS (1)
  - Autonomic neuropathy [Recovered/Resolved]
